FAERS Safety Report 5803451-3 (Version None)
Quarter: 2008Q3

REPORT INFORMATION
  Report Type: 
  Country: None (occurrence: None)
  Receive Date: 20080708
  Receipt Date: 20080627
  Transmission Date: 20090109
  Serious: Yes (Other)
  Sender: FDA-Public Use
  Company Number: US-WYE-H02988508

PATIENT
  Sex: Male
  Weight: 91.25 kg

DRUGS (11)
  1. SIROLIMUS [Suspect]
     Indication: PROPHYLAXIS AGAINST TRANSPLANT REJECTION
     Route: 048
     Dates: start: 20071212, end: 20080205
  2. ENALAPRIL MALEATE [Concomitant]
     Dates: start: 20071024
  3. LASIX [Concomitant]
     Indication: OEDEMA
     Dosage: 40 MG PRN TWICE WEEKLY
     Dates: start: 20070220
  4. VITAMINS NOS [Concomitant]
     Dates: start: 20061114
  5. LIPITOR [Concomitant]
     Dates: start: 20070508
  6. PROGRAF [Concomitant]
     Indication: PROPHYLAXIS AGAINST TRANSPLANT REJECTION
     Route: 048
     Dates: start: 20070625, end: 20080226
  7. PROGRAF [Concomitant]
     Route: 048
     Dates: start: 20080227, end: 20080311
  8. PROGRAF [Concomitant]
     Dosage: 2 MG/1.5 MG DAILY
     Route: 048
     Dates: start: 20080312
  9. MAGNESIUM OXIDE [Concomitant]
     Dates: start: 20061114
  10. ACETYLSALICYLIC ACID SRT [Concomitant]
     Dates: start: 20061211
  11. HYDROCHLOROTHIAZIDE [Concomitant]
     Dates: start: 20070104

REACTIONS (1)
  - HEART TRANSPLANT REJECTION [None]
